FAERS Safety Report 6028040-X (Version None)
Quarter: 2008Q4

REPORT INFORMATION
  Report Type: 
  Country: None (occurrence: None)
  Receive Date: 20081231
  Receipt Date: 20081222
  Transmission Date: 20090506
  Serious: Yes (Death)
  Sender: FDA-Public Use
  Company Number: GXKR2008GB12212

PATIENT
  Age: 54 Year

DRUGS (2)
  1. KETOPROFEN [Suspect]
     Indication: OSTEOARTHRITIS
     Dosage: 100 MG, ORAL
     Route: 048
     Dates: start: 20060101
  2. NSULIN (INSULIN) [Concomitant]

REACTIONS (1)
  - DUODENAL ULCER [None]
